FAERS Safety Report 8849169 (Version 1)
Quarter: 2012Q4

REPORT INFORMATION
  Report Type: Spontaneous
  Country: US (occurrence: None)
  Receive Date: 20121017
  Receipt Date: 20121017
  Transmission Date: 20130627
  Serious: Yes (Death, Hospitalization, Other)
  Sender: FDA-Public Use
  Company Number: KV201200203

PATIENT
  Sex: Female

DRUGS (1)
  1. MAKENA [Suspect]
     Indication: MATERNAL EXPOSURE DURING PREGNANCY
     Dates: start: 2012, end: 2012

REACTIONS (7)
  - Premature baby [None]
  - Death neonatal [None]
  - Foetal distress syndrome [None]
  - Caesarean section [None]
  - Foetal malpresentation [None]
  - Maternal drugs affecting foetus [None]
  - Apgar score low [None]
